FAERS Safety Report 6417503-0 (Version None)
Quarter: 2009Q4

REPORT INFORMATION
  Report Type: 
  Country: None (occurrence: None)
  Receive Date: 20091028
  Receipt Date: 20090916
  Transmission Date: 20100525
  Serious: Yes (Death, Life-Threatening, Other)
  Sender: FDA-Public Use
  Company Number: US-BAXTER-2009BH008086

PATIENT
  Age: 77 Year
  Sex: Male

DRUGS (3)
  1. HEPARIN SODIUM INJECTION [Suspect]
     Indication: THROMBOSIS PROPHYLAXIS
     Route: 010
     Dates: start: 20060801, end: 20080328
  2. LOVENOX [Concomitant]
     Indication: DRUG USE FOR UNKNOWN INDICATION
     Route: 058
  3. WARFARIN SODIUM [Concomitant]
     Indication: DRUG USE FOR UNKNOWN INDICATION
     Route: 065

REACTIONS (13)
  - CARDIAC ARREST [None]
  - CARDIAC FAILURE CONGESTIVE [None]
  - CARDIOMYOPATHY [None]
  - EMPYEMA [None]
  - GASTROINTESTINAL HAEMORRHAGE [None]
  - HAEMOPHILUS INFECTION [None]
  - INTERSTITIAL LUNG DISEASE [None]
  - LEUKOCYTOSIS [None]
  - MULTIPLE MYELOMA [None]
  - PNEUMONIA [None]
  - PULMONARY EMBOLISM [None]
  - RENAL FAILURE CHRONIC [None]
  - SEPSIS [None]
